FAERS Safety Report 13405790 (Version 2)
Quarter: 2017Q2

REPORT INFORMATION
  Report Type: Spontaneous
  Country: US (occurrence: US)
  Receive Date: 20170405
  Receipt Date: 20170413
  Transmission Date: 20170830
  Serious: Yes (Other)
  Sender: FDA-Public Use
  Company Number: US-PFIZER INC-2017146138

PATIENT
  Age: 74 Year
  Sex: Male
  Weight: 81.65 kg

DRUGS (3)
  1. LYRICA [Suspect]
     Active Substance: PREGABALIN
     Indication: NEUROPATHY PERIPHERAL
  2. LYRICA [Suspect]
     Active Substance: PREGABALIN
     Indication: DIABETIC NEPHROPATHY
     Dosage: 50 MG, 1X/DAY (AT NIGHT)
     Dates: start: 20170303
  3. CELEXA [Concomitant]
     Active Substance: CITALOPRAM HYDROBROMIDE
     Dosage: UNK

REACTIONS (11)
  - Suicidal ideation [Recovered/Resolved]
  - Dizziness [Recovered/Resolved]
  - Constipation [Recovered/Resolved]
  - Depression [Not Recovered/Not Resolved]
  - Thinking abnormal [Recovered/Resolved]
  - Skin lesion [Not Recovered/Not Resolved]
  - Pruritus [Unknown]
  - Confusional state [Recovered/Resolved]
  - Somnolence [Not Recovered/Not Resolved]
  - Hypersomnia [Not Recovered/Not Resolved]
  - Vision blurred [Recovered/Resolved]

NARRATIVE: CASE EVENT DATE: 201703
